FAERS Safety Report 7416345-7 (Version None)
Quarter: 2011Q2

REPORT INFORMATION
  Report Type: 
  Country: None (occurrence: None)
  Receive Date: 20110414
  Receipt Date: 20110408
  Transmission Date: 20111010
  Serious: Yes (Other)
  Sender: FDA-Public Use
  Company Number: US-AMGEN-USASP2011019137

PATIENT
  Sex: Male

DRUGS (15)
  1. GLIMEPIRIDE [Concomitant]
     Dosage: 8 MG, QD
  2. VICODIN [Concomitant]
  3. VYTORIN [Concomitant]
     Dosage: UNK UNK, QD
  4. LORATADINE [Concomitant]
     Dosage: 10 MG, QD
  5. SERTRALINE [Concomitant]
     Dosage: 100 MG, QD
  6. LISINOPRIL [Concomitant]
     Dosage: 10 MG, QD
  7. FEXOFENADINE [Concomitant]
     Dosage: 120 MG, TID
  8. IMMUNOGLOBULINS [Concomitant]
     Indication: IDIOPATHIC THROMBOCYTOPENIC PURPURA
  9. JANUVIA [Concomitant]
     Dosage: 100 MG, QD
  10. TAMSULOSIN [Concomitant]
     Dosage: 0.4 MG, QD
  11. MORPHINE SULFATE [Concomitant]
     Dosage: 15 MG, TID
  12. PROMACTA [Concomitant]
  13. BETHANECHOL [Concomitant]
     Dosage: 50 MG, Q8H
  14. NPLATE [Suspect]
     Indication: IDIOPATHIC THROMBOCYTOPENIC PURPURA
     Dates: start: 20080924
  15. ACTOS [Concomitant]
     Dosage: 45 MG, QD

REACTIONS (3)
  - BENIGN PROSTATIC HYPERPLASIA [None]
  - HAEMATURIA [None]
  - INTERVERTEBRAL DISC DEGENERATION [None]
